FAERS Safety Report 20201659 (Version 1)
Quarter: 2021Q4

REPORT INFORMATION
  Report Type: Spontaneous
  Country: GR (occurrence: GR)
  Receive Date: 20211217
  Receipt Date: 20211217
  Transmission Date: 20220303
  Serious: Yes (Other)
  Sender: FDA-Public Use
  Company Number: GR-NOVARTISPH-NVSC2021GR288219

PATIENT

DRUGS (1)
  1. TASIGNA [Interacting]
     Active Substance: NILOTINIB
     Indication: Chronic myeloid leukaemia
     Dosage: 300 MG, BID
     Route: 048

REACTIONS (2)
  - Syncope [Recovered/Resolved]
  - Tachycardia [Recovered/Resolved]
